FAERS Safety Report 5582849-5 (Version None)
Quarter: 2008Q1

REPORT INFORMATION
  Report Type: 
  Country: None (occurrence: None)
  Receive Date: 20080107
  Receipt Date: 20080102
  Transmission Date: 20080703
  Serious: Yes (Hospitalization)
  Sender: FDA-Public Use
  Company Number: US-ASTRAZENECA-2008UW00074

PATIENT
  Age: 24 Year
  Sex: Female

DRUGS (6)
  1. SEROQUEL [Suspect]
     Route: 048
  2. LITHIUM CARBONATE [Suspect]
  3. VENLAFAXINE HCL [Suspect]
  4. LUNESTA [Suspect]
  5. CHLORPROMAZINE [Suspect]
  6. TOPIRAMATE [Suspect]

REACTIONS (1)
  - OVERDOSE [None]
